FAERS Safety Report 6011903-9 (Version None)
Quarter: 2008Q4

REPORT INFORMATION
  Report Type: 
  Country: None (occurrence: None)
  Receive Date: 20081218
  Receipt Date: 20081106
  Transmission Date: 20090506
  Serious: No
  Sender: FDA-Public Use
  Company Number: US-ASTRAZENECA-2008UW21138

PATIENT
  Age: 26536 Day
  Sex: Female
  Weight: 49 kg

DRUGS (4)
  1. CRESTOR [Suspect]
     Indication: BLOOD CHOLESTEROL INCREASED
     Route: 048
     Dates: start: 20080901, end: 20080901
  2. ATENOLOL [Concomitant]
  3. HYDROCHLOROTHIAZIDE [Concomitant]
  4. PAROXETINE HCL [Concomitant]
     Indication: PANIC ATTACK
     Dates: end: 20080901

REACTIONS (7)
  - DIARRHOEA [None]
  - DIZZINESS [None]
  - EATING DISORDER SYMPTOM [None]
  - FATIGUE [None]
  - HEADACHE [None]
  - NAUSEA [None]
  - VOMITING [None]
